FAERS Safety Report 18374008 (Version 1)
Quarter: 2020Q4

REPORT INFORMATION
  Report Type: Spontaneous
  Country: US (occurrence: US)
  Receive Date: 20201012
  Receipt Date: 20201012
  Transmission Date: 20210114
  Serious: Yes (Hospitalization, Other)
  Sender: FDA-Public Use
  Company Number: US-PURDUE-USA-2020-0169923

PATIENT
  Sex: Female

DRUGS (2)
  1. DILAUDID [Suspect]
     Active Substance: HYDROMORPHONE HYDROCHLORIDE
     Indication: PRODUCT USED FOR UNKNOWN INDICATION
     Dosage: UNK
     Route: 048
  2. OXYIR [Suspect]
     Active Substance: OXYCODONE HYDROCHLORIDE
     Indication: PRODUCT USED FOR UNKNOWN INDICATION
     Dosage: UNK
     Route: 065

REACTIONS (21)
  - Intestinal obstruction [Unknown]
  - Headache [Unknown]
  - Constipation [Unknown]
  - Suicidal ideation [Unknown]
  - Impaired self-care [Unknown]
  - Mental disorder [Unknown]
  - Loss of libido [Unknown]
  - Amnesia [Unknown]
  - Nausea [Unknown]
  - Taste disorder [Unknown]
  - Surgery [Unknown]
  - Anxiety [Unknown]
  - Feeling abnormal [Unknown]
  - Drug dependence [Unknown]
  - Abnormal behaviour [Unknown]
  - Depression [Unknown]
  - Drug withdrawal syndrome [Unknown]
  - Parosmia [Unknown]
  - General physical condition abnormal [Unknown]
  - Weight decreased [Unknown]
  - Decreased appetite [Unknown]
